FAERS Safety Report 4970535-1 (Version None)
Quarter: 2006Q2

REPORT INFORMATION
  Report Type: 
  Country: None (occurrence: None)
  Receive Date: 20060411
  Receipt Date: 20060411
  Transmission Date: 20061013
  Serious: Yes (Death)
  Sender: FDA-Public Use
  Company Number: None

PATIENT
  Sex: Female
  Weight: 97.2 kg

DRUGS (2)
  1. CLOFARABINE [Suspect]
     Indication: ACUTE MYELOID LEUKAEMIA
     Dosage: 10 MG/M2/DAY D1-3, 8-10 IV DRIP
     Route: 041
     Dates: start: 20060329, end: 20060407
  2. CYCLOPHOSPHAMIDE [Suspect]
     Indication: ACUTE MYELOID LEUKAEMIA
     Dosage: 400 MG /M2/DAY D1-3, 8-10 IV DRIP
     Route: 041
     Dates: start: 20060328, end: 20060407

REACTIONS (5)
  - ACUTE RESPIRATORY DISTRESS SYNDROME [None]
  - HEPATIC FAILURE [None]
  - HYPOTENSION [None]
  - ISCHAEMIC HEPATITIS [None]
  - RENAL FAILURE [None]
